FAERS Safety Report 13600549 (Version 1)
Quarter: 2017Q2

REPORT INFORMATION
  Report Type: Spontaneous
  Country: US (occurrence: US)
  Receive Date: 20170531
  Receipt Date: 20170531
  Transmission Date: 20170830
  Serious: No
  Sender: FDA-Public Use
  Company Number: None

PATIENT
  Age: 61 Year
  Sex: Male
  Weight: 108 kg

DRUGS (18)
  1. VITAMIN D [Concomitant]
     Active Substance: CHOLECALCIFEROL
  2. MAGNESIUM MALATE [Concomitant]
  3. ASPIRIN. [Concomitant]
     Active Substance: ASPIRIN
  4. LISINOPRIL. [Concomitant]
     Active Substance: LISINOPRIL
  5. COQ10 [Concomitant]
     Active Substance: UBIDECARENONE
  6. DHEA [Concomitant]
     Active Substance: PRASTERONE
  7. VITAMIN B12 [Concomitant]
     Active Substance: CYANOCOBALAMIN
  8. HYDROXYZINE PAOMATE [Suspect]
     Active Substance: HYDROXYZINE PAMOATE
     Indication: INSOMNIA
     Dosage: ?          QUANTITY:14 CAPSULE(S);?
     Route: 048
     Dates: start: 20170505, end: 20170525
  9. FISH OIL [Concomitant]
     Active Substance: FISH OIL
  10. PJOSPHATIDYLSERINE [Concomitant]
  11. SELINIUM [Concomitant]
  12. FENOFIBRATE. [Suspect]
     Active Substance: FENOFIBRATE
     Indication: BLOOD TRIGLYCERIDES INCREASED
     Dosage: ?          QUANTITY:30 CAPSULE(S);OTHER ROUTE:ORAL?
     Route: 048
     Dates: start: 20170428, end: 20170530
  13. PIROXETINE [Concomitant]
  14. ANDROGEL [Concomitant]
     Active Substance: TESTOSTERONE
  15. FERROCHEL IRON [Concomitant]
  16. HYDROCODONE [Concomitant]
     Active Substance: HYDROCODONE
  17. CHRYSTIN [Concomitant]
  18. ENDOZIN [Concomitant]

REACTIONS (2)
  - Dyspnoea [None]
  - Fatigue [None]

NARRATIVE: CASE EVENT DATE: 20170527
